FAERS Safety Report 4500328-0 (Version None)
Quarter: 2004Q3

REPORT INFORMATION
  Report Type: 
  Country: None (occurrence: None)
  Receive Date: 20040927
  Receipt Date: 20040713
  Transmission Date: 20050211
  Serious: No
  Sender: FDA-Public Use
  Company Number: USA040772532

PATIENT
  Age: 49 Year
  Sex: Male
  Weight: 70 kg

DRUGS (4)
  1. STRATTERA [Suspect]
     Indication: ATTENTION DEFICIT/HYPERACTIVITY DISORDER
     Dosage: 40 MG/2 DAY
     Dates: start: 20040622
  2. KLONOPIN [Concomitant]
  3. DIVALPROEX SODIUM [Concomitant]
  4. BEXTRA [Concomitant]

REACTIONS (4)
  - ACCIDENTAL OVERDOSE [None]
  - DRUG INEFFECTIVE [None]
  - PRURITUS [None]
  - URTICARIA [None]
